FAERS Safety Report 23996356 (Version 2)
Quarter: 2024Q2

REPORT INFORMATION
  Report Type: Report from Study
  Country: GB (occurrence: GB)
  Receive Date: 20240620
  Receipt Date: 20240622
  Transmission Date: 20240716
  Serious: Yes (Other)
  Sender: FDA-Public Use
  Company Number: GB-002147023-NVSC2024GB108814

PATIENT
  Sex: Female

DRUGS (1)
  1. KESIMPTA [Suspect]
     Active Substance: OFATUMUMAB
     Indication: Multiple sclerosis
     Dosage: 20 MG, QW
     Route: 058
     Dates: start: 20240513

REACTIONS (5)
  - Lower respiratory tract infection [Unknown]
  - Headache [Unknown]
  - Chills [Unknown]
  - Oral herpes [Unknown]
  - COVID-19 [Unknown]

NARRATIVE: CASE EVENT DATE: 20240528
